FAERS Safety Report 8267581-1 (Version None)
Quarter: 2012Q2

REPORT INFORMATION
  Report Type: 
  Country: None (occurrence: None)
  Receive Date: 20120409
  Receipt Date: 20120329
  Transmission Date: 20120825
  Serious: Yes (Death, Hospitalization, Other)
  Sender: FDA-Public Use
  Company Number: IE-ELI_LILLY_AND_COMPANY-IE201203009113

PATIENT
  Sex: Female
  Weight: 58 kg

DRUGS (10)
  1. PROZAC [Suspect]
     Dosage: 20 MG, QD
     Dates: start: 20110926
  2. PROZAC [Suspect]
     Dosage: UNK
     Dates: start: 20111102, end: 20111102
  3. PROZAC [Suspect]
     Dosage: UNK
     Dates: start: 20111201, end: 20120101
  4. PROZAC [Suspect]
     Dosage: 20 MG, QD
     Dates: start: 20111101, end: 20111201
  5. RISPERDAL [Concomitant]
     Dosage: UNK
     Dates: start: 20111102, end: 20111102
  6. RISPERDAL [Concomitant]
     Dosage: 0.25 MG, TID
     Dates: start: 20110926
  7. DIAZEPAM [Concomitant]
     Dosage: 5 MG, QD
     Dates: start: 20111101
  8. ACETAMINOPHEN [Concomitant]
     Dosage: UNK
     Dates: start: 20111102
  9. SERTRALINE HYDROCHLORIDE [Concomitant]
     Indication: DEPRESSION
     Dosage: 50 MG, UNK
     Route: 048
     Dates: start: 20120123
  10. RISPERDAL [Concomitant]
     Dosage: 0.25 MG, TID
     Dates: start: 20111101

REACTIONS (3)
  - COMPLETED SUICIDE [None]
  - OVERDOSE [None]
  - SELF INJURIOUS BEHAVIOUR [None]
